FAERS Safety Report 10314282 (Version 1)
Quarter: 2014Q3

REPORT INFORMATION
  Report Type: Spontaneous
  Country: BR (occurrence: BR)
  Receive Date: 20140718
  Receipt Date: 20140718
  Transmission Date: 20150326
  Serious: Yes (Hospitalization)
  Sender: FDA-Public Use
  Company Number: BR-GLAXOSMITHKLINE-A1081345A

PATIENT
  Age: 1 Year
  Sex: Male
  Weight: 13 kg

DRUGS (4)
  1. FLIXOTIDE DISKUS [Suspect]
     Active Substance: FLUTICASONE PROPIONATE
     Indication: LUNG DISORDER
     Dosage: 1PUFF TWICE PER DAY
     Route: 065
     Dates: start: 20140602, end: 20140604
  2. MONTELUKAST [Concomitant]
     Active Substance: MONTELUKAST SODIUM
  3. RANITIDINE [Concomitant]
     Active Substance: RANITIDINE\RANITIDINE HYDROCHLORIDE
  4. FLIXOTIDE [Suspect]
     Active Substance: FLUTICASONE PROPIONATE
     Indication: LUNG DISORDER
     Dosage: 5PUFF PER DAY
     Route: 065
     Dates: start: 20140606, end: 20140628

REACTIONS (6)
  - Overdose [Recovered/Resolved]
  - Drug administered to patient of inappropriate age [Recovered/Resolved]
  - Drug ineffective [Recovered/Resolved]
  - Tremor [Recovered/Resolved]
  - Hypothermia [Recovered/Resolved]
  - Off label use [Unknown]

NARRATIVE: CASE EVENT DATE: 201406
